FAERS Safety Report 8395770-4 (Version None)
Quarter: 2012Q2

REPORT INFORMATION
  Report Type: 
  Country: None (occurrence: None)
  Receive Date: 20120530
  Receipt Date: 20120523
  Transmission Date: 20120825
  Serious: No
  Sender: FDA-Public Use
  Company Number: US-B.I. PHARMACEUTICALS,INC./RIDGEFIELD-2012-BP-11514BP

PATIENT
  Age: 70 Year
  Sex: Male

DRUGS (6)
  1. DIVON [Concomitant]
     Dosage: 320 MG
  2. METFORMIN HCL [Concomitant]
     Dosage: 100 MG
     Route: 048
  3. PRILOSEC [Concomitant]
     Dosage: 20 MG
     Route: 048
  4. HYTRIN [Concomitant]
     Dosage: 10 MG
     Route: 048
  5. TRADJENTA [Suspect]
     Indication: TYPE 2 DIABETES MELLITUS
     Dosage: 5 MG
     Route: 048
     Dates: start: 20120412
  6. GLIPIZIDE [Concomitant]
     Dosage: 10 MG

REACTIONS (2)
  - RASH PAPULAR [None]
  - OROPHARYNGEAL PAIN [None]
